FAERS Safety Report 21386644 (Version 1)
Quarter: 2022Q3

REPORT INFORMATION
  Report Type: Spontaneous
  Country: CA (occurrence: CA)
  Receive Date: 20220928
  Receipt Date: 20220928
  Transmission Date: 20221027
  Serious: Yes (Hospitalization)
  Sender: FDA-Public Use
  Company Number: CA-ANIPHARMA-2022-CA-001916

PATIENT
  Age: 79 Year
  Sex: Female

DRUGS (2)
  1. CANDESARTAN CILEXETIL [Suspect]
     Active Substance: CANDESARTAN CILEXETIL
     Indication: Product used for unknown indication
     Route: 065
  2. CELECOXIB [Suspect]
     Active Substance: CELECOXIB
     Route: 065

REACTIONS (3)
  - Erosive oesophagitis [Unknown]
  - Ulcer [Unknown]
  - Upper gastrointestinal haemorrhage [Unknown]
